FAERS Safety Report 23772159 (Version 1)
Quarter: 2024Q2

REPORT INFORMATION
  Report Type: Spontaneous
  Country: US (occurrence: None)
  Receive Date: 20240423
  Receipt Date: 20240423
  Transmission Date: 20240715
  Serious: No
  Sender: FDA-Public Use
  Company Number: 2024A094741

PATIENT
  Sex: Female

DRUGS (1)
  1. SYMBICORT [Suspect]
     Active Substance: BUDESONIDE\FORMOTEROL FUMARATE DIHYDRATE
     Indication: Asthma
     Dosage: 4.5 UG, TWO TIMES A DAY, SYMBICORT 2 PUFFS TWICE A DAY, SYMBICORT 160/4.5MCG,
     Route: 055
     Dates: start: 20240321

REACTIONS (3)
  - Wrong technique in device usage process [Unknown]
  - Dyspnoea [Unknown]
  - Device defective [Unknown]
